FAERS Safety Report 14250774 (Version 1)
Quarter: 2017Q4

REPORT INFORMATION
  Report Type: Spontaneous
  Country: US (occurrence: US)
  Receive Date: 20171205
  Receipt Date: 20171205
  Transmission Date: 20180321
  Serious: No
  Sender: FDA-Public Use
  Company Number: US-PFIZER INC-2017516424

PATIENT
  Age: 49 Year
  Sex: Male
  Weight: 117.93 kg

DRUGS (1)
  1. VIAGRA [Suspect]
     Active Substance: SILDENAFIL CITRATE
     Dosage: UNK

REACTIONS (3)
  - Suspected counterfeit product [Unknown]
  - Eye disorder [Unknown]
  - Intentional product misuse [Unknown]
